FAERS Safety Report 20345686 (Version 2)
Quarter: 2022Q1

REPORT INFORMATION
  Report Type: Spontaneous
  Country: JP (occurrence: JP)
  Receive Date: 20220118
  Receipt Date: 20220120
  Transmission Date: 20220423
  Serious: Yes (Hospitalization, Other)
  Sender: FDA-Public Use
  Company Number: JP-BRISTOL-MYERS SQUIBB COMPANY-BMS-2021-113408

PATIENT
  Age: 72 Year
  Sex: Male
  Weight: 54 kg

DRUGS (2)
  1. YERVOY [Suspect]
     Active Substance: IPILIMUMAB
     Indication: Metastatic renal cell carcinoma
     Dosage: 54 MILLIGRAM, 3 TIMES
     Route: 041
     Dates: start: 20210803, end: 20210921
  2. OPDIVO [Suspect]
     Active Substance: NIVOLUMAB
     Indication: Metastatic renal cell carcinoma
     Dosage: 240 MILLIGRAM, 3 TIMES
     Route: 041
     Dates: start: 20210803, end: 20210921

REACTIONS (5)
  - Adrenocorticotropic hormone deficiency [Recovering/Resolving]
  - Malignant neoplasm progression [Unknown]
  - Thyroid disorder [Unknown]
  - Infusion related reaction [Unknown]
  - Physical deconditioning [Unknown]

NARRATIVE: CASE EVENT DATE: 20211001
